FAERS Safety Report 6803024-X (Version None)
Quarter: 2010Q2

REPORT INFORMATION
  Report Type: 
  Country: None (occurrence: None)
  Receive Date: 20100628
  Receipt Date: 20100623
  Transmission Date: 20101027
  Serious: Yes (Death)
  Sender: FDA-Public Use
  Company Number: JP-ASTRAZENECA-2010SE26284

PATIENT

DRUGS (1)
  1. SYMBICORT [Suspect]
     Indication: ASTHMA
     Route: 055

REACTIONS (1)
  - DEATH [None]
